FAERS Safety Report 10025438 (Version 1)
Quarter: 2014Q1

REPORT INFORMATION
  Report Type: Spontaneous
  Country: SG (occurrence: SG)
  Receive Date: 20140320
  Receipt Date: 20140320
  Transmission Date: 20141002
  Serious: Yes (Death, Other)
  Sender: FDA-Public Use
  Company Number: SG-BAXTER-2014BAX013184

PATIENT
  Age: 74 Year
  Sex: Female

DRUGS (7)
  1. GAMMAGARD S/D  FOR INJECTION [Suspect]
     Indication: PRODUCT USED FOR UNKNOWN INDICATION
     Route: 042
  2. METHYLPREDNISOLONE [Concomitant]
     Indication: PRODUCT USED FOR UNKNOWN INDICATION
     Route: 065
  3. DIAZEPAM [Concomitant]
     Indication: PRODUCT USED FOR UNKNOWN INDICATION
     Route: 065
  4. BACLOFEN [Concomitant]
     Indication: PRODUCT USED FOR UNKNOWN INDICATION
     Route: 065
  5. CYCLOPHOSPHAMIDE [Concomitant]
     Indication: BREAST CANCER
     Route: 065
  6. METHOTREXATE [Concomitant]
     Indication: BREAST CANCER
     Route: 065
  7. 5-FLUOROURACIL [Concomitant]
     Indication: BREAST CANCER
     Route: 065

REACTIONS (5)
  - Musculoskeletal stiffness [Unknown]
  - Stridor [Unknown]
  - Respiratory failure [Fatal]
  - Cell-mediated cytotoxicity [Unknown]
  - Condition aggravated [Unknown]
